FAERS Safety Report 6056463-1 (Version None)
Quarter: 2009Q1

REPORT INFORMATION
  Report Type: 
  Country: None (occurrence: None)
  Receive Date: 20090126
  Receipt Date: 20090126
  Transmission Date: 20090719
  Serious: Yes (Other)
  Sender: FDA-Public Use
  Company Number: None

PATIENT
  Age: 43 Year
  Sex: Female
  Weight: 65.7716 kg

DRUGS (1)
  1. AVELOX [Suspect]
     Indication: SINUSITIS
     Dosage: 400MG 1 A DAY
     Dates: start: 20090109, end: 20090109

REACTIONS (8)
  - ANXIETY [None]
  - BLOOD GLUCOSE ABNORMAL [None]
  - CONFUSIONAL STATE [None]
  - HALLUCINATION [None]
  - HEART RATE IRREGULAR [None]
  - MENTAL STATUS CHANGES [None]
  - MOOD ALTERED [None]
  - TREMOR [None]
